FAERS Safety Report 18957702 (Version 1)
Quarter: 2021Q1

REPORT INFORMATION
  Report Type: Report from Study
  Country: JP (occurrence: JP)
  Receive Date: 20210302
  Receipt Date: 20210302
  Transmission Date: 20210420
  Serious: Yes (Death, Other)
  Sender: FDA-Public Use
  Company Number: JP-PFIZER INC-2021167368

PATIENT

DRUGS (20)
  1. CYTARABINE. [Suspect]
     Active Substance: CYTARABINE
     Indication: PROPHYLACTIC CHEMOTHERAPY
  2. LEUCOVORIN [FOLINIC ACID] [Suspect]
     Active Substance: LEUCOVORIN
     Indication: NON-HODGKIN^S LYMPHOMA
     Dosage: 15 MG/BODY*Q6*6 AT DAY 3?4, 10?11 OF CYCLE 6 (LOW DOSE)
     Route: 042
  3. IFOSFAMIDE. [Suspect]
     Active Substance: IFOSFAMIDE
     Indication: PROPHYLACTIC CHEMOTHERAPY
  4. DOXORUBICIN HCL [Suspect]
     Active Substance: DOXORUBICIN HYDROCHLORIDE
     Indication: NON-HODGKIN^S LYMPHOMA
     Dosage: 75 MG/M2, CYCLIC, (CIV (24 H) AT DAY 1 OF CYCLE 1,3,5,7)
     Route: 042
  5. DOXORUBICIN HCL [Suspect]
     Active Substance: DOXORUBICIN HYDROCHLORIDE
     Indication: CHEMOTHERAPY CARDIOTOXICITY ATTENUATION
  6. METHOTREXATE SODIUM. [Suspect]
     Active Substance: METHOTREXATE SODIUM
     Indication: NON-HODGKIN^S LYMPHOMA
     Dosage: 500 MG/M2, CYCLIC, (CIV (24 H) AT DAY 1,8 OF CYCLE 7)
     Route: 042
  7. CYTARABINE. [Suspect]
     Active Substance: CYTARABINE
     Indication: NON-HODGKIN^S LYMPHOMA
     Dosage: 1 G/M2 X2, HIGH DOSE, DAY 1?2 OF CYCLE 8 (3W)
     Route: 042
  8. METHYLPREDNISOLONE SODIUM SUCCINATE. [Suspect]
     Active Substance: METHYLPREDNISOLONE SODIUM SUCCINATE
     Indication: NON-HODGKIN^S LYMPHOMA
     Dosage: 500 MG/BODY*2, AT DAY 1?3 OF 1?8 CYCLES
     Route: 042
  9. VINCRISTINE [Suspect]
     Active Substance: VINCRISTINE
     Indication: NON-HODGKIN^S LYMPHOMA
     Dosage: 1.4 MG/M2, CYCLIC(DAY 1OF CYCLE 1?5 AND 7 (2W) AND AT DAY 2 AND 9 OF CYCLE 5 (2W))
     Route: 042
  10. BLEOMYCIN [Suspect]
     Active Substance: BLEOMYCIN SULFATE
     Indication: NON-HODGKIN^S LYMPHOMA
     Dosage: 10 MG/M2, DAY 1 OF CYCLE 1?5 (2W PER CYCLE) AND CYCLE 7 (2W)
     Route: 042
  11. MITOXANTRONE HCL [Suspect]
     Active Substance: MITOXANTRONE HYDROCHLORIDE
     Indication: NON-HODGKIN^S LYMPHOMA
     Dosage: 8 MG/M2,  (CIV (24 H) DAY 1 AND 2 OF CYCLE 4 AND AT DAY 2 AND 3 OF CYCLE 8 )
     Route: 042
  12. LEUCOVORIN [FOLINIC ACID] [Suspect]
     Active Substance: LEUCOVORIN
     Indication: PROPHYLAXIS
  13. CYCLOPHOSPHAMIDE. [Suspect]
     Active Substance: CYCLOPHOSPHAMIDE
     Indication: NON-HODGKIN^S LYMPHOMA
     Dosage: 1200 MG/M2, DAY 1 OF CYCLE 1?5
     Route: 042
  14. IFOSFAMIDE. [Suspect]
     Active Substance: IFOSFAMIDE
     Indication: NON-HODGKIN^S LYMPHOMA
     Dosage: 1000 MG/M2, DAY 1?4 OF CYCLE 7
     Route: 042
  15. CARBOPLATIN. [Suspect]
     Active Substance: CARBOPLATIN
     Indication: NON-HODGKIN^S LYMPHOMA
     Dosage: 150 MG/M2, DAY 1?3 OF CYCLE 8 (3W)
     Route: 042
  16. HYDROCORTISONE. [Concomitant]
     Active Substance: HYDROCORTISONE
     Indication: PROPHYLACTIC CHEMOTHERAPY
     Dosage: 50 MG, IN THE FIRST TO FIFTH CYCLES OF THERAPY AS MUCH AS POSSIBLE
     Route: 037
  17. METHOTREXATE SODIUM. [Suspect]
     Active Substance: METHOTREXATE SODIUM
     Indication: PROPHYLACTIC CHEMOTHERAPY
     Dosage: 15 MG/BODY, DAY 1 OF CYCLE 1?5 (3?5 TIMES IN CYCLES 1?5) (2 WEEKS PER CYCLE)
     Route: 037
  18. MITOXANTRONE HCL [Suspect]
     Active Substance: MITOXANTRONE HYDROCHLORIDE
     Indication: CHEMOTHERAPY CARDIOTOXICITY ATTENUATION
  19. ETOPOSIDE. [Suspect]
     Active Substance: ETOPOSIDE
     Indication: NON-HODGKIN^S LYMPHOMA
     Dosage: 200 MG/M2, DAY 1?3 OF CYCLE 2 (2W)
     Route: 042
  20. COTRIMOXAZOLE [Concomitant]
     Active Substance: SULFAMETHOXAZOLE\TRIMETHOPRIM
     Indication: ANTIFUNGAL PROPHYLAXIS
     Dosage: 2 DF, DAILY (TWO TABLETS THROUGHOUT THE COURSE OF TREATMENT EXCEPT DURING THE SIXTH CYCLE)
     Route: 048

REACTIONS (1)
  - Pseudomonal sepsis [Fatal]
